FAERS Safety Report 8607441 (Version 3)
Quarter: 2013Q4

REPORT INFORMATION
  Report Type: Spontaneous
  Country: US (occurrence: US)
  Receive Date: 20120611
  Receipt Date: 20131004
  Transmission Date: 20140711
  Serious: Yes (Hospitalization)
  Sender: FDA-Public Use
  Company Number: US-US-EMD SERONO, INC.-7137528

PATIENT
  Sex: Male

DRUGS (2)
  1. REBIF [Suspect]
     Indication: MULTIPLE SCLEROSIS
     Dates: end: 20120228
  2. REBIF [Suspect]
     Route: 058
     Dates: start: 20120706, end: 20120729

REACTIONS (3)
  - Arthropathy [Unknown]
  - Nosocomial infection [Unknown]
  - Staphylococcal infection [Unknown]
